FAERS Safety Report 24749105 (Version 1)
Quarter: 2024Q4

REPORT INFORMATION
  Report Type: Spontaneous
  Country: US (occurrence: US)
  Receive Date: 20241218
  Receipt Date: 20241218
  Transmission Date: 20250115
  Serious: No
  Sender: Harrow Health
  Company Number: US-IMP-2024001131

PATIENT
  Sex: Female

DRUGS (2)
  1. VEVYE [Suspect]
     Active Substance: CYCLOSPORINE
     Indication: Product use in unapproved indication
     Route: 047
     Dates: start: 2024, end: 20241109
  2. VEVYE [Suspect]
     Active Substance: CYCLOSPORINE
     Indication: Product use in unapproved indication
     Route: 047
     Dates: start: 2024

REACTIONS (2)
  - Eye irritation [Not Recovered/Not Resolved]
  - Product administration interrupted [Unknown]

NARRATIVE: CASE EVENT DATE: 20240101
